FAERS Safety Report 20214599 (Version 3)
Quarter: 2021Q4

REPORT INFORMATION
  Report Type: Report from Study
  Country: NL (occurrence: NL)
  Receive Date: 20211221
  Receipt Date: 20211229
  Transmission Date: 20220303
  Serious: Yes (Death, Other)
  Sender: FDA-Public Use
  Company Number: NL-ABBVIE-21K-114-4121901-00

PATIENT
  Age: 64 Year
  Sex: Female
  Weight: 71 kg

DRUGS (11)
  1. VENETOCLAX [Suspect]
     Active Substance: VENETOCLAX
     Indication: Acute myeloid leukaemia refractory
     Dosage: CYCLE 1, 1 DAY
     Route: 048
     Dates: start: 20211005, end: 20211005
  2. VENETOCLAX [Suspect]
     Active Substance: VENETOCLAX
     Dosage: CYCLE 1, 1 DAY
     Route: 048
     Dates: start: 20211006, end: 20211006
  3. VENETOCLAX [Suspect]
     Active Substance: VENETOCLAX
     Dosage: CYCLE 1, 3 TO 28 DAYS
     Route: 048
     Dates: start: 20211101, end: 202111
  4. VENETOCLAX [Suspect]
     Active Substance: VENETOCLAX
     Dosage: CYCLE 2
     Route: 048
     Dates: start: 20211115, end: 20211208
  5. DECITABINE [Suspect]
     Active Substance: DECITABINE
     Indication: Acute myeloid leukaemia refractory
     Route: 042
     Dates: start: 20210901, end: 20210903
  6. DECITABINE [Suspect]
     Active Substance: DECITABINE
     Route: 042
     Dates: start: 20211005, end: 2021
  7. DECITABINE [Suspect]
     Active Substance: DECITABINE
     Route: 042
     Dates: start: 20211115, end: 20211125
  8. POSACONAZOLE [Concomitant]
     Active Substance: POSACONAZOLE
     Indication: Prophylaxis
     Route: 048
     Dates: start: 20211020, end: 20211208
  9. COLISTIN [Concomitant]
     Active Substance: COLISTIN
     Indication: Prophylaxis
     Route: 048
     Dates: start: 20211020, end: 20211208
  10. COTRIMOXAZOLE [Concomitant]
     Active Substance: SULFAMETHOXAZOLE\TRIMETHOPRIM
     Indication: Prophylaxis
     Dosage: 160/800 MG
     Route: 048
     Dates: start: 20211020, end: 20211208
  11. OXAZEPAM [Concomitant]
     Active Substance: OXAZEPAM
     Indication: Product used for unknown indication
     Route: 048
     Dates: start: 20211020, end: 20211208

REACTIONS (5)
  - Cerebral haemorrhage [Fatal]
  - Platelet count decreased [Fatal]
  - Blast cells [Unknown]
  - Neutropenia [Unknown]
  - Off label use [Not Recovered/Not Resolved]

NARRATIVE: CASE EVENT DATE: 20210101
